FAERS Safety Report 7853818-7 (Version None)
Quarter: 2011Q4

REPORT INFORMATION
  Report Type: 
  Country: None (occurrence: None)
  Receive Date: 20111026
  Receipt Date: 20111021
  Transmission Date: 20120403
  Serious: Yes (Other)
  Sender: FDA-Public Use
  Company Number: US-PFIZER INC-2011256185

PATIENT
  Sex: Female

DRUGS (1)
  1. NEURONTIN [Suspect]
     Dosage: UNK

REACTIONS (6)
  - DIZZINESS [None]
  - ABDOMINAL PAIN UPPER [None]
  - LOSS OF CONSCIOUSNESS [None]
  - HEADACHE [None]
  - SPEECH DISORDER [None]
  - INFLUENZA LIKE ILLNESS [None]
